FAERS Safety Report 6303695-0 (Version None)
Quarter: 2009Q3

REPORT INFORMATION
  Report Type: 
  Country: None (occurrence: None)
  Receive Date: 20090807
  Receipt Date: 20090807
  Transmission Date: 20100115
  Serious: Yes (Life-Threatening)
  Sender: FDA-Public Use
  Company Number: None

PATIENT
  Sex: Female
  Weight: 47.6277 kg

DRUGS (1)
  1. INFLIXIMAB [Suspect]
     Indication: CROHN'S DISEASE
     Dosage: STANDARD INFUSION, EVERY 2 MONTHS, IV
     Route: 042
     Dates: end: 20081201

REACTIONS (2)
  - AMPUTATION [None]
  - SARCOMA [None]
